FAERS Safety Report 18916603 (Version 2)
Quarter: 2021Q2

REPORT INFORMATION
  Report Type: Report from Study
  Country: US (occurrence: US)
  Receive Date: 20210219
  Receipt Date: 20210422
  Transmission Date: 20210717
  Serious: No
  Sender: FDA-Public Use
  Company Number: NVSC2021US038559

PATIENT
  Sex: Female

DRUGS (1)
  1. KISQALI [Suspect]
     Active Substance: RIBOCICLIB
     Indication: BREAST CANCER METASTATIC
     Dosage: UNK
     Route: 065

REACTIONS (7)
  - Feeling cold [Unknown]
  - Flatulence [Unknown]
  - Hypotension [Unknown]
  - Abdominal discomfort [Unknown]
  - Muscle spasms [Unknown]
  - Chills [Unknown]
  - Diarrhoea [Unknown]
